FAERS Safety Report 10017726 (Version 2)
Quarter: 2014Q1

REPORT INFORMATION
  Report Type: Spontaneous
  Country: US (occurrence: US)
  Receive Date: 20140318
  Receipt Date: 20140318
  Transmission Date: 20141002
  Serious: No
  Sender: FDA-Public Use
  Company Number: US-BRISTOL-MYERS SQUIBB COMPANY-18698357

PATIENT
  Age: 59 Year
  Sex: Female

DRUGS (3)
  1. ERBITUX [Suspect]
     Indication: RECTAL CANCER
     Dates: start: 20120815
  2. PACLITAXEL [Suspect]
  3. IRINOTECAN [Suspect]
     Indication: RECTAL CANCER

REACTIONS (1)
  - Medication error [Unknown]
